FAERS Safety Report 9317651 (Version 2)
Quarter: 2013Q2

REPORT INFORMATION
  Report Type: Spontaneous
  Country: MA (occurrence: MA)
  Receive Date: 20130530
  Receipt Date: 20130627
  Transmission Date: 20140414
  Serious: Yes (Disabling, Other)
  Sender: FDA-Public Use
  Company Number: MA-PFIZER INC-2013162619

PATIENT
  Age: 18 Year
  Sex: Male
  Weight: 46 kg

DRUGS (1)
  1. NORDITROPIN [Suspect]
     Indication: GROWTH HORMONE DEFICIENCY
     Dosage: 5.3 MG, UNK
     Dates: start: 20130503, end: 20130524

REACTIONS (1)
  - Musculoskeletal disorder [Unknown]
